FAERS Safety Report 14287053 (Version 1)
Quarter: 2017Q4

REPORT INFORMATION
  Report Type: Spontaneous
  Country: US (occurrence: US)
  Receive Date: 20171214
  Receipt Date: 20171214
  Transmission Date: 20180321
  Serious: No
  Sender: FDA-Public Use
  Company Number: US-ASTELLAS-2017US035851

PATIENT
  Sex: Female

DRUGS (2)
  1. TARCEVA [Suspect]
     Active Substance: ERLOTINIB HYDROCHLORIDE
     Indication: NON-SMALL CELL LUNG CANCER STAGE IV
     Route: 065
     Dates: start: 20170517, end: 20170711
  2. TARCEVA [Suspect]
     Active Substance: ERLOTINIB HYDROCHLORIDE
     Route: 065
     Dates: start: 20170727

REACTIONS (13)
  - Nasal ulcer [Recovered/Resolved]
  - Alopecia [Recovered/Resolved]
  - Hair texture abnormal [Recovered/Resolved]
  - Epistaxis [Recovered/Resolved]
  - Scab [Recovered/Resolved]
  - Acne [Recovering/Resolving]
  - Rash erythematous [Recovered/Resolved]
  - Dry skin [Recovered/Resolved]
  - Madarosis [Recovered/Resolved]
  - Eye infection [Recovering/Resolving]
  - Fungal infection [Recovered/Resolved]
  - Diarrhoea [Recovered/Resolved]
  - Dry skin [Recovering/Resolving]
